FAERS Safety Report 9508100 (Version 2)
Quarter: 2013Q3

REPORT INFORMATION
  Report Type: Spontaneous
  Country: DE (occurrence: DE)
  Receive Date: 20130909
  Receipt Date: 20130909
  Transmission Date: 20140515
  Serious: Yes (Hospitalization)
  Sender: FDA-Public Use
  Company Number: DE-EISAI INC-E2007-01276-SPO-DE

PATIENT
  Sex: Male

DRUGS (4)
  1. FYCOMPA (PERAMPANEL) [Suspect]
     Indication: EPILEPSY
     Dosage: 8 MG/DAY
     Route: 048
     Dates: start: 20130610, end: 2013
  2. FYCOMPA (PERAMPANEL) [Suspect]
     Dosage: 6 MG/DAY
     Route: 048
     Dates: start: 2013
  3. ESLICARBAZEPINE ACETATE [Concomitant]
     Indication: EPILEPSY
     Dosage: 1200 MG/DAY
     Route: 048
     Dates: start: 2010
  4. PHENYTOIN [Concomitant]
     Indication: EPILEPSY
     Dosage: 500 MG/DAY
     Route: 048

REACTIONS (1)
  - Emotional disorder [Recovered/Resolved]
